FAERS Safety Report 16722823 (Version 2)
Quarter: 2019Q3

REPORT INFORMATION
  Report Type: Report from Study
  Country: None (occurrence: US)
  Receive Date: 20190821
  Receipt Date: 20190905
  Transmission Date: 20191005
  Serious: Yes (Other)
  Sender: FDA-Public Use
  Company Number: US-ABBVIE-19K-163-2773102-00

PATIENT
  Sex: Female
  Weight: 102.15 kg

DRUGS (3)
  1. LOSARTAN. [Concomitant]
     Active Substance: LOSARTAN
     Indication: HYPERTENSION
  2. HUMIRA [Suspect]
     Active Substance: ADALIMUMAB
     Indication: PSORIASIS
  3. HUMIRA [Suspect]
     Active Substance: ADALIMUMAB
     Indication: EOSINOPHILIC CELLULITIS
     Route: 058
     Dates: start: 2017

REACTIONS (1)
  - Exostosis [Recovering/Resolving]

NARRATIVE: CASE EVENT DATE: 2017
